FAERS Safety Report 8465376-7 (Version None)
Quarter: 2012Q2

REPORT INFORMATION
  Report Type: 
  Country: None (occurrence: None)
  Receive Date: 20120323
  Receipt Date: 20110927
  Transmission Date: 20120825
  Serious: Yes (Hospitalization)
  Sender: FDA-Public Use
  Company Number: 163-21880-11093300

PATIENT
  Age: 86 Year
  Sex: Male
  Weight: 64.8644 kg

DRUGS (13)
  1. COREG [Concomitant]
  2. CALCIUM PLUS VITAMIN D (CALCIUM WITH VITAMIN D) [Concomitant]
  3. PRADAXA (DABIGATRAN ETEXILATE MESILATE) [Concomitant]
  4. DIGOXIN [Concomitant]
  5. MULTIVITAMIN [Concomitant]
  6. REVLIMID [Suspect]
     Indication: MULTIPLE MYELOMA
     Dosage: 25 MG, DAILY FOR 21 DAYS EVERY 28 DAYS, PO
     Route: 048
     Dates: start: 20110803
  7. CALCITRIOL [Concomitant]
  8. COLACE (DOCUSATE SODIUM) [Concomitant]
  9. LIDODERM [Concomitant]
  10. DEXAMETHASONE [Concomitant]
  11. LIPITOR [Concomitant]
  12. FLOMAX [Concomitant]
  13. AMITIZA [Concomitant]

REACTIONS (2)
  - CARDIAC FAILURE CONGESTIVE [None]
  - URINARY TRACT INFECTION [None]
